FAERS Safety Report 12698769 (Version 1)
Quarter: 2016Q3

REPORT INFORMATION
  Report Type: Spontaneous
  Country: US (occurrence: US)
  Receive Date: 20160830
  Receipt Date: 20160830
  Transmission Date: 20161109
  Serious: Yes (Death, Hospitalization)
  Sender: FDA-Public Use
  Company Number: US-ACTELION-A-US2016-141094

PATIENT
  Age: 87 Year
  Sex: Female

DRUGS (4)
  1. OPSUMIT [Suspect]
     Active Substance: MACITENTAN
     Indication: PULMONARY ARTERIAL HYPERTENSION
     Dosage: 10 MG, QD
     Route: 048
     Dates: start: 20151002
  2. TIMOLOL. [Concomitant]
     Active Substance: TIMOLOL
     Dosage: UNK GTT, UNK
  3. VANCOMYCIN [Concomitant]
     Active Substance: VANCOMYCIN
     Dosage: 125 MG, Q6HRS
     Dates: start: 20160718
  4. FUROSEMIDE. [Concomitant]
     Active Substance: FUROSEMIDE
     Dosage: 20 MG, BID

REACTIONS (4)
  - Condition aggravated [Unknown]
  - Clostridium difficile colitis [Fatal]
  - Dehydration [Fatal]
  - Acute kidney injury [Unknown]
